FAERS Safety Report 24110321 (Version 1)
Quarter: 2024Q3

REPORT INFORMATION
  Report Type: Spontaneous
  Country: US (occurrence: None)
  Receive Date: 20240717
  Receipt Date: 20240717
  Transmission Date: 20241017
  Serious: Yes (Life-Threatening, Other)
  Sender: Public
  Company Number: None

PATIENT
  Age: 58 Year
  Sex: Female
  Weight: 121.05 kg

DRUGS (1)
  1. OZEMPIC [Suspect]
     Active Substance: SEMAGLUTIDE

REACTIONS (8)
  - Quality of life decreased [None]
  - Feeling abnormal [None]
  - Screaming [None]
  - Anxiety [None]
  - Depression [None]
  - Suicidal ideation [None]
  - Emotional distress [None]
  - Product communication issue [None]

NARRATIVE: CASE EVENT DATE: 20240717
